FAERS Safety Report 10053504 (Version 2)
Quarter: 2014Q2

REPORT INFORMATION
  Report Type: Spontaneous
  Country: US (occurrence: US)
  Receive Date: 20140402
  Receipt Date: 20140515
  Transmission Date: 20141212
  Serious: No
  Sender: FDA-Public Use
  Company Number: US-PFIZER INC-2014090139

PATIENT
  Age: 56 Year
  Sex: Female

DRUGS (12)
  1. XELJANZ [Suspect]
     Indication: RHEUMATOID ARTHRITIS
     Dosage: 5 MG, 2X/DAY
     Route: 048
     Dates: start: 20140204
  2. FOSAMAX [Concomitant]
     Dosage: UNK
  3. CALTRATE 600+D [Concomitant]
     Dosage: UNK
  4. FOLIC ACID [Concomitant]
     Dosage: 800 UG, UNK
  5. ADVIL [Concomitant]
  6. LEVOTHROID [Concomitant]
     Dosage: 25 UG, UNK
  7. METHOTREXATE [Concomitant]
     Dosage: 2.5 MG, UNK
  8. ALENDRONATE [Concomitant]
     Dosage: 70 MG, UNK
  9. PRAVASTATIN [Concomitant]
     Dosage: 40 MG, UNK
  10. IBUPROFEN M [Concomitant]
     Dosage: 200 MG, UNK
  11. CALTRATE [Concomitant]
     Dosage: UNK
  12. LEVOTHYROID [Concomitant]
     Dosage: UNK

REACTIONS (4)
  - Upper respiratory tract infection [Unknown]
  - Cough [Unknown]
  - Nasal congestion [Unknown]
  - Malaise [Unknown]
